FAERS Safety Report 21754463 (Version 1)
Quarter: 2022Q4

REPORT INFORMATION
  Report Type: Spontaneous
  Country: SI (occurrence: SI)
  Receive Date: 20221220
  Receipt Date: 20221220
  Transmission Date: 20230113
  Serious: Yes (Other)
  Sender: FDA-Public Use
  Company Number: SI-002147023-NVSC2022SI233857

PATIENT
  Age: 54 Year
  Sex: Male

DRUGS (1)
  1. ESOMEPRAZOLE [Suspect]
     Active Substance: ESOMEPRAZOLE
     Indication: Product used for unknown indication
     Dosage: 40 MG, QD
     Route: 065

REACTIONS (5)
  - Pain [Not Recovered/Not Resolved]
  - Acute myocardial infarction [Unknown]
  - Coronary artery disease [Unknown]
  - Musculoskeletal chest pain [Not Recovered/Not Resolved]
  - Angina pectoris [Unknown]
